FAERS Safety Report 8263079-5 (Version None)
Quarter: 2012Q2

REPORT INFORMATION
  Report Type: 
  Country: None (occurrence: None)
  Receive Date: 20120405
  Receipt Date: 20120328
  Transmission Date: 20120825
  Serious: Yes (Hospitalization)
  Sender: FDA-Public Use
  Company Number: US-ACTELION-A-US2011-56421

PATIENT

DRUGS (12)
  1. NITROGLYCERIN [Concomitant]
  2. LEVOTHYROXINE SODIUM [Concomitant]
  3. MULTI-VITAMIN [Concomitant]
  4. VITAMIN D [Concomitant]
  5. OMEPRAZOLE [Concomitant]
  6. TRACLEER [Suspect]
     Indication: PULMONARY ARTERIAL HYPERTENSION
     Dosage: UNK
     Route: 048
     Dates: start: 20070912
  7. LEVETIRACETAM [Concomitant]
  8. SIMVASTATIN [Concomitant]
  9. SPIRONOLACTONE [Concomitant]
  10. COUMADIN [Concomitant]
  11. FLUOXETINE [Concomitant]
  12. EPOPROSTENOL SODIUM [Suspect]
     Indication: PULMONARY ARTERIAL HYPERTENSION
     Dosage: 32 NG/KG, PER MIN
     Route: 042
     Dates: start: 20110228

REACTIONS (4)
  - CATHETER SITE INFECTION [None]
  - DEVICE RELATED INFECTION [None]
  - CATHETER SITE ERYTHEMA [None]
  - CATHETER SITE DISCHARGE [None]
